FAERS Safety Report 22210960 (Version 7)
Quarter: 2023Q4

REPORT INFORMATION
  Report Type: Report from Study
  Country: CA (occurrence: CA)
  Receive Date: 20230414
  Receipt Date: 20231026
  Transmission Date: 20240110
  Serious: Yes (Other)
  Sender: FDA-Public Use
  Company Number: CA-TEVA-2023-CA-2876015

PATIENT
  Age: 48 Year
  Sex: Male

DRUGS (4)
  1. AJOVY [Suspect]
     Active Substance: FREMANEZUMAB-VFRM
     Indication: Migraine prophylaxis
     Route: 058
     Dates: start: 20221214
  2. AJOVY [Suspect]
     Active Substance: FREMANEZUMAB-VFRM
     Dosage: LAST DOSE ADMINISTERED DATE 03-MAY-2023
     Route: 058
  3. Amitriplytine [Concomitant]
     Indication: Product used for unknown indication
  4. Suvexx [Concomitant]
     Indication: Product used for unknown indication

REACTIONS (13)
  - Hepatomegaly [Unknown]
  - Loss of consciousness [Unknown]
  - Epilepsy [Unknown]
  - Paralysis [Unknown]
  - Flank pain [Unknown]
  - Memory impairment [Not Recovered/Not Resolved]
  - Dizziness [Unknown]
  - Migraine [Not Recovered/Not Resolved]
  - Scoliosis [Unknown]
  - Spinal osteoarthritis [Unknown]
  - Spinal stenosis [Unknown]
  - Stress [Unknown]
  - Inappropriate schedule of product administration [Unknown]

NARRATIVE: CASE EVENT DATE: 20230503
